FAERS Safety Report 6355548-X (Version None)
Quarter: 2009Q3

REPORT INFORMATION
  Report Type: 
  Country: None (occurrence: None)
  Receive Date: 20090914
  Receipt Date: 20090902
  Transmission Date: 20100115
  Serious: Yes (Death)
  Sender: FDA-Public Use
  Company Number: AU-ABBOTT-06P-008-0336652-00

PATIENT
  Sex: Female
  Weight: 75 kg

DRUGS (1)
  1. REDUCTIL 10MG [Suspect]
     Indication: DRUG USE FOR UNKNOWN INDICATION
     Route: 048

REACTIONS (5)
  - ANXIETY [None]
  - CARDIAC FAILURE [None]
  - CIRCULATORY COLLAPSE [None]
  - DEATH [None]
  - FEELING JITTERY [None]
